FAERS Safety Report 9369884 (Version 1)
Quarter: 2013Q2

REPORT INFORMATION
  Report Type: Spontaneous
  Country: DK (occurrence: JP)
  Receive Date: 20130626
  Receipt Date: 20130626
  Transmission Date: 20140414
  Serious: Yes (Hospitalization)
  Sender: FDA-Public Use
  Company Number: JP-FRI-1000046217

PATIENT
  Age: 31 Year
  Sex: Female

DRUGS (5)
  1. LEXAPRO [Suspect]
     Dosage: OVERDOSE: 29 TABLETS
  2. TRIAZOLAM [Suspect]
     Dosage: OVERDOSE: 40 TABLETS
  3. CLONAZEPAM [Suspect]
     Dosage: OVERDOSE: 7 TABLETS
  4. FLUNITRAZEPAM [Suspect]
     Dosage: OVERDOSE: 61 TABLETS
  5. BLONANSERIN [Suspect]
     Dosage: OVERDOSE: UNKNOWN DOSE

REACTIONS (2)
  - Altered state of consciousness [Recovered/Resolved]
  - Overdose [Recovered/Resolved]
